FAERS Safety Report 8617892-2 (Version None)
Quarter: 2012Q3

REPORT INFORMATION
  Report Type: 
  Country: None (occurrence: None)
  Receive Date: 20120824
  Receipt Date: 20120426
  Transmission Date: 20120928
  Serious: No
  Sender: FDA-Public Use
  Company Number: US-ASTRAZENECA-2012SE17086

PATIENT
  Age: 67 Year
  Sex: Female
  Weight: 68 kg

DRUGS (5)
  1. QVAR 40 [Concomitant]
  2. SYMBICORT [Suspect]
     Indication: CHRONIC OBSTRUCTIVE PULMONARY DISEASE
     Dosage: 160/4.5 MICROGRAMS, TWO PUFFS, TWO TIMES DAILY.
     Route: 055
     Dates: start: 20081030, end: 20120402
  3. PROAIR HFA [Concomitant]
     Indication: ASTHMA
     Dosage: 1-2 PUFFS DAILY, 4-6 HOURS AS PER NEEDED.
     Route: 055
     Dates: start: 20100225
  4. SYMBICORT [Suspect]
     Indication: ASTHMA
     Dosage: 160/4.5 MICROGRAMS, TWO PUFFS, TWO TIMES DAILY.
     Route: 055
     Dates: start: 20081030, end: 20120402
  5. SINGULAIR [Concomitant]
     Indication: ASTHMA
     Route: 048
     Dates: start: 20080402

REACTIONS (5)
  - MOBILITY DECREASED [None]
  - CIRCUMSTANCE OR INFORMATION CAPABLE OF LEADING TO MEDICATION ERROR [None]
  - DYSPNOEA [None]
  - CHEST DISCOMFORT [None]
  - WHEEZING [None]
